FAERS Safety Report 6875213-X (Version None)
Quarter: 2010Q3

REPORT INFORMATION
  Report Type: 
  Country: None (occurrence: None)
  Receive Date: 20100727
  Receipt Date: 20100715
  Transmission Date: 20110219
  Serious: Yes (Other)
  Sender: FDA-Public Use
  Company Number: DE-JNJFOC-20100705129

PATIENT
  Age: 65 Year
  Sex: Female

DRUGS (4)
  1. DURAGESIC-100 [Suspect]
     Indication: PRODUCT USED FOR UNKNOWN INDICATION
     Route: 062
  2. DECORTIN [Concomitant]
     Route: 065
  3. CELECOXIB [Concomitant]
     Route: 065
  4. ATACAND [Concomitant]
     Route: 065

REACTIONS (1)
  - NEURODERMATITIS [None]
